FAERS Safety Report 5926222-6 (Version None)
Quarter: 2008Q4

REPORT INFORMATION
  Report Type: 
  Country: None (occurrence: None)
  Receive Date: 20081017
  Receipt Date: 20081006
  Transmission Date: 20090506
  Serious: Yes (Other)
  Sender: FDA-Public Use
  Company Number: 2008AP002672

PATIENT
  Age: 67 Year
  Sex: Female

DRUGS (1)
  1. APO-FLUNISOLIDE NASAL SPRAY (FLUNISOLIDE) [Suspect]
     Indication: SINUSITIS
     Dosage: 2 SPR; BID NAS
     Route: 045
     Dates: start: 20080930, end: 20081001

REACTIONS (1)
  - BRONCHOSPASM [None]
